FAERS Safety Report 24369669 (Version 1)
Quarter: 2024Q3

REPORT INFORMATION
  Report Type: Report from Study
  Country: US (occurrence: US)
  Receive Date: 20240927
  Receipt Date: 20240927
  Transmission Date: 20241017
  Serious: No
  Sender: ROCHE
  Company Number: US-ROCHE-3478985

PATIENT
  Age: 84 Year
  Sex: Female
  Weight: 60.33 kg

DRUGS (1)
  1. LUCENTIS [Suspect]
     Active Substance: RANIBIZUMAB
     Indication: Neovascular age-related macular degeneration
     Dosage: RECEIVES IN RIGHT EYE?FORM OF ADMIN : SHOT
     Route: 065
     Dates: start: 2021

REACTIONS (3)
  - Eye pruritus [Not Recovered/Not Resolved]
  - Eye haemorrhage [Recovered/Resolved]
  - Eye swelling [Not Recovered/Not Resolved]
